FAERS Safety Report 6594995-8 (Version None)
Quarter: 2010Q1

REPORT INFORMATION
  Report Type: 
  Country: None (occurrence: None)
  Receive Date: 20100218
  Receipt Date: 20100218
  Transmission Date: 20100710
  Serious: Yes (Hospitalization)
  Sender: FDA-Public Use
  Company Number: None

PATIENT
  Sex: Male
  Weight: 75 kg

DRUGS (4)
  1. FLUOROURACIL [Suspect]
     Dosage: 5290 MG
     Dates: end: 20100216
  2. BEVACIZUMAB (RHUMAB VEGF) [Suspect]
     Dosage: 350 MG
     Dates: end: 20100202
  3. CAMPTOSAR [Suspect]
     Dosage: 340 MG
     Dates: end: 20100216
  4. LEUCOVORIN CALCIUM [Suspect]
     Dosage: 755 MG
     Dates: end: 20100216

REACTIONS (1)
  - DEEP VEIN THROMBOSIS [None]
